FAERS Safety Report 8494528-5 (Version None)
Quarter: 2012Q3

REPORT INFORMATION
  Report Type: 
  Country: None (occurrence: None)
  Receive Date: 20120709
  Receipt Date: 20120614
  Transmission Date: 20120928
  Serious: Yes (Other)
  Sender: FDA-Public Use
  Company Number: US-JNJFOC-20120609346

PATIENT
  Age: 61 Year
  Sex: Female
  Weight: 64.41 kg

DRUGS (6)
  1. ZYRTEC [Suspect]
     Route: 048
  2. LISINOPRIL [Concomitant]
     Indication: HYPERTENSION
     Dosage: STARTED YEARS AGO
     Route: 065
  3. ALEVE [Concomitant]
     Indication: PAIN
     Dosage: AS NEEDED WEEKS AGO
     Route: 065
  4. ZYRTEC [Suspect]
     Indication: ASTHMA
     Route: 048
     Dates: start: 20120417, end: 20120611
  5. PROAIR HFA [Concomitant]
     Indication: ASTHMA
     Dosage: 2 PUFFS AS NEEDED
     Route: 065
     Dates: start: 20120417
  6. SYMBICORT [Concomitant]
     Indication: ASTHMA
     Route: 065
     Dates: start: 20120417

REACTIONS (7)
  - OFF LABEL USE [None]
  - HYPERHIDROSIS [None]
  - NAUSEA [None]
  - PARAESTHESIA [None]
  - MUSCLE SPASMS [None]
  - LOSS OF CONSCIOUSNESS [None]
  - CONSTIPATION [None]
